FAERS Safety Report 7232121-2 (Version None)
Quarter: 2011Q1

REPORT INFORMATION
  Report Type: 
  Country: None (occurrence: None)
  Receive Date: 20110119
  Receipt Date: 20110112
  Transmission Date: 20110831
  Serious: Yes (Other)
  Sender: FDA-Public Use
  Company Number: CY-BIOGENIDEC-2010BI043335

PATIENT
  Age: 50 Year
  Sex: Female
  Weight: 57 kg

DRUGS (4)
  1. NORFLOXACIN [Concomitant]
  2. ANTIBIOTICS [Concomitant]
  3. TYSABRI [Suspect]
     Route: 042
     Dates: start: 20101123
  4. TYSABRI [Suspect]
     Indication: RELAPSING-REMITTING MULTIPLE SCLEROSIS
     Route: 042
     Dates: start: 20070901

REACTIONS (1)
  - TONGUE DISCOLOURATION [None]
